FAERS Safety Report 21341250 (Version 2)
Quarter: 2022Q4

REPORT INFORMATION
  Report Type: Spontaneous
  Country: DE (occurrence: DE)
  Receive Date: 20220916
  Receipt Date: 20221004
  Transmission Date: 20230112
  Serious: Yes (Hospitalization, Other)
  Sender: FDA-Public Use
  Company Number: None

PATIENT
  Age: 74 Year
  Sex: Male

DRUGS (39)
  1. MYCOPHENOLATE MOFETIL [Suspect]
     Active Substance: MYCOPHENOLATE MOFETIL
     Indication: Transplant
     Dosage: 2 DOSAGE FORM
     Route: 065
  2. TAMSULOSIN HYDROCHLORIDE [Suspect]
     Active Substance: TAMSULOSIN HYDROCHLORIDE
     Indication: Product used for unknown indication
     Dosage: 0.4 MILLIGRAM, QD
     Route: 065
  3. PANTOPRAZOLE [Suspect]
     Active Substance: PANTOPRAZOLE
     Indication: Abdominal discomfort
     Dosage: 20 MILLIGRAM, QD
     Route: 065
     Dates: start: 201705
  4. TACROLIMUS [Suspect]
     Active Substance: TACROLIMUS
     Indication: Product used for unknown indication
     Dosage: 1 MILLIGRAM
     Route: 065
     Dates: start: 2018
  5. TACROLIMUS [Suspect]
     Active Substance: TACROLIMUS
     Dosage: .4 MILLIGRAM, QD
     Route: 065
  6. TACROLIMUS [Suspect]
     Active Substance: TACROLIMUS
     Dosage: 0.5 MILLIGRAM, BID
     Route: 065
  7. TACROLIMUS [Suspect]
     Active Substance: TACROLIMUS
     Dosage: 1 MILLIGRAM, BID
     Route: 065
  8. TACROLIMUS [Suspect]
     Active Substance: TACROLIMUS
     Dosage: UNK (PROGRAF)
     Route: 065
  9. TACROLIMUS [Suspect]
     Active Substance: TACROLIMUS
     Dosage: 1 MILLIGRAM, BID
     Route: 065
  10. TACROLIMUS [Suspect]
     Active Substance: TACROLIMUS
     Dosage: 0.5 MILLIGRAM, BID
     Route: 065
  11. TACROLIMUS [Suspect]
     Active Substance: TACROLIMUS
     Dosage: .4 MILLIGRAM, QD
     Route: 065
  12. AMPHO-MORONAL [Suspect]
     Active Substance: AMPHOTERICIN B
     Indication: Product used for unknown indication
     Dosage: 3 DOSAGE FORM
     Route: 065
     Dates: start: 20140729
  13. ARANESP [Suspect]
     Active Substance: DARBEPOETIN ALFA
     Indication: Product used for unknown indication
     Dosage: 10 MILLIGRAM (EVERY 1 WEEK)
     Route: 065
     Dates: start: 20141210
  14. CANDESARTAN CILEXETIL [Suspect]
     Active Substance: CANDESARTAN CILEXETIL
     Indication: Blood pressure abnormal
     Dosage: 32 MILLIGRAM (BLOPRESS)
     Route: 065
  15. CANDESARTAN CILEXETIL [Suspect]
     Active Substance: CANDESARTAN CILEXETIL
     Dosage: 32 MILLIGRAM, QD
     Route: 065
     Dates: start: 20210226
  16. CARVEDILOL [Suspect]
     Active Substance: CARVEDILOL
     Indication: Blood pressure abnormal
     Dosage: 25 MILLIGRAM
     Route: 065
  17. COTRIMOXAZOLE [Suspect]
     Active Substance: SULFAMETHOXAZOLE\TRIMETHOPRIM
     Indication: Product used for unknown indication
     Dosage: 480 MILLIGRAM
     Route: 065
     Dates: start: 20140401
  18. DIGITOXIN [Suspect]
     Active Substance: DIGITOXIN
     Indication: Cardiac disorder
     Dosage: 1 DOSAGE FORM, QD
     Route: 065
  19. CHOLECALCIFEROL [Suspect]
     Active Substance: CHOLECALCIFEROL
     Indication: Product used for unknown indication
     Dosage: UNK
     Route: 065
  20. FLUVASTATIN SODIUM [Suspect]
     Active Substance: FLUVASTATIN SODIUM
     Indication: Blood cholesterol abnormal
     Dosage: UNK
     Route: 065
  21. FUROSEMIDE [Suspect]
     Active Substance: FUROSEMIDE
     Indication: Fluid retention
     Dosage: 40 MILLIGRAM
     Route: 065
  22. FERROUS GLYCINE SULFATE [Suspect]
     Active Substance: FERROUS GLYCINE SULFATE
     Indication: Product used for unknown indication
     Dosage: 100 MILLIGRAM, QD
     Route: 065
     Dates: start: 20150610
  23. HYGROTON [Suspect]
     Active Substance: CHLORTHALIDONE
     Indication: Blood pressure abnormal
     Dosage: 0.5 DOSAGE FORM, QD
     Route: 065
  24. CALCIUM CARBONATE\CHOLECALCIFEROL [Suspect]
     Active Substance: CALCIUM CARBONATE\CHOLECALCIFEROL
     Indication: Product used for unknown indication
     Dosage: 2 DOSAGE FORM
     Route: 065
     Dates: start: 20170729
  25. MARCUMAR [Suspect]
     Active Substance: PHENPROCOUMON
     Indication: Cardiac disorder
     Dosage: UNK
     Route: 048
  26. MARCUMAR [Suspect]
     Active Substance: PHENPROCOUMON
     Indication: Anticoagulant therapy
     Dosage: 0.5 DOSAGE FORM
     Route: 065
  27. NITRENDIPINE [Suspect]
     Active Substance: NITRENDIPINE
     Indication: Blood pressure measurement
     Dosage: 2 DOSAGE FORM, QD (EVERY 1 DAY)
     Route: 065
  28. NITRENDIPINE [Suspect]
     Active Substance: NITRENDIPINE
     Indication: Blood pressure abnormal
     Dosage: 40 MILLIGRAM, QD( EVERY 1 DAY)
     Route: 065
  29. NITRENDIPINE [Suspect]
     Active Substance: NITRENDIPINE
     Indication: Blood pressure measurement
     Dosage: 20 MILLIGRAM, QD( EVERY 1 DAY )
     Route: 065
  30. NITRENDIPINE [Suspect]
     Active Substance: NITRENDIPINE
     Dosage: 10 MILLIGRAM, QD( EVERY 1 DAY )
     Route: 065
  31. SODIUM BICARBONATE [Suspect]
     Active Substance: SODIUM BICARBONATE
     Indication: Product used for unknown indication
     Dosage: 1 GRAM, QD
     Route: 065
  32. TORSEMIDE [Suspect]
     Active Substance: TORSEMIDE
     Indication: Prostate infection
     Dosage: 0.5 DOSAGE FORM, QD( EVERY 1 DAY)
     Route: 065
  33. VALGANCICLOVIR HYDROCHLORIDE [Suspect]
     Active Substance: VALGANCICLOVIR HYDROCHLORIDE
     Indication: Product used for unknown indication
     Dosage: 450 MILLIGRAM, QD(EVERY 1 DAY)
     Route: 065
     Dates: start: 20140801, end: 20140801
  34. SODIUM BICARBONATE [Suspect]
     Active Substance: SODIUM BICARBONATE
     Indication: Product used for unknown indication
     Dosage: 1 GRAM
     Route: 065
  35. DOXAZOSIN MESYLATE [Suspect]
     Active Substance: DOXAZOSIN MESYLATE
     Indication: Blood pressure abnormal
     Dosage: 2 DOSAGE FORM
     Route: 065
  36. DOXAZOSIN MESYLATE [Suspect]
     Active Substance: DOXAZOSIN MESYLATE
     Indication: Hypertension
     Dosage: 8 MILLIGRAM
     Route: 065
  37. DOXAZOSIN MESYLATE [Suspect]
     Active Substance: DOXAZOSIN MESYLATE
     Dosage: 16 MILLIGRAM
     Route: 065
  38. DOXAZOSIN MESYLATE [Suspect]
     Active Substance: DOXAZOSIN MESYLATE
     Dosage: 4 MILLIGRAM
     Route: 065
  39. CHOLECALCIFEROL [Suspect]
     Active Substance: CHOLECALCIFEROL
     Indication: Product used for unknown indication
     Dosage: UNK

REACTIONS (76)
  - Diverticulum intestinal [Unknown]
  - Actinic keratosis [Unknown]
  - Activated partial thromboplastin time prolonged [Unknown]
  - Arteriosclerosis [Unknown]
  - Atrial fibrillation [Unknown]
  - Atrioventricular block first degree [Unknown]
  - Aortic arteriosclerosis [Unknown]
  - Aortic dilatation [Unknown]
  - Blood 25-hydroxycholecalciferol decreased [Unknown]
  - Bradycardia [Unknown]
  - Basal cell carcinoma [Unknown]
  - Benign prostatic hyperplasia [Unknown]
  - Blood potassium increased [Unknown]
  - Blood pressure fluctuation [Unknown]
  - Chronic kidney disease [Unknown]
  - Carotid arteriosclerosis [Unknown]
  - Complications of transplanted kidney [Unknown]
  - COVID-19 [Unknown]
  - C-reactive protein increased [Unknown]
  - Diverticulum intestinal [Unknown]
  - Dizziness [Unknown]
  - Delayed graft function [Unknown]
  - Fear [Unknown]
  - Gastrooesophageal reflux disease [Unknown]
  - Glycosylated haemoglobin increased [Unknown]
  - Haemoglobin decreased [Unknown]
  - Haemorrhoids [Unknown]
  - Hepatosplenomegaly [Unknown]
  - Hepatic steatosis [Unknown]
  - Hypertension [Unknown]
  - Hyperparathyroidism secondary [Unknown]
  - Incorrect dose administered [Unknown]
  - Pancreatic cystadenoma [Unknown]
  - Intervertebral disc space narrowing [Unknown]
  - Metabolic acidosis [Unknown]
  - Left ventricular hypertrophy [Unknown]
  - Mean cell volume increased [Unknown]
  - Myalgia [Unknown]
  - Overdose [Unknown]
  - Oedema peripheral [Unknown]
  - Presyncope [Unknown]
  - Perineal cyst [Unknown]
  - SARS-CoV-2 antibody test positive [Unknown]
  - Spinal osteoarthritis [Unknown]
  - Squamous cell carcinoma of skin [Unknown]
  - Spinal stenosis [Unknown]
  - Squamous cell carcinoma of skin [Unknown]
  - Swelling [Unknown]
  - Thrombosis [Unknown]
  - Red blood cell count decreased [Recovered/Resolved]
  - Rectal prolapse [Unknown]
  - Restless legs syndrome [Unknown]
  - Renal cyst haemorrhage [Unknown]
  - Vascular anastomotic haemorrhage [Unknown]
  - Vascular compression [Unknown]
  - Vertigo [Unknown]
  - Abdominal wall haemorrhage [Unknown]
  - Glycosylated haemoglobin increased [Unknown]
  - Haemorrhage [Unknown]
  - Thrombosis [Unknown]
  - Vascular anastomotic haemorrhage [Unknown]
  - Renal cyst haemorrhage [Not Recovered/Not Resolved]
  - Blood 25-hydroxycholecalciferol decreased [Recovered/Resolved]
  - Atrial fibrillation [Not Recovered/Not Resolved]
  - Swelling face [Unknown]
  - Mean cell volume increased [Recovered/Resolved]
  - Large intestine polyp [Unknown]
  - Renal artery stenosis [Unknown]
  - Incorrect dose administered [Unknown]
  - Diverticulum intestinal [Unknown]
  - Vitamin D decreased [Recovered/Resolved]
  - Aortic valve incompetence [Unknown]
  - Pulmonary hypertension [Unknown]
  - Myalgia [Unknown]
  - Swelling of eyelid [Unknown]
  - Vena cava injury [Unknown]

NARRATIVE: CASE EVENT DATE: 20130401
